FAERS Safety Report 10518944 (Version 1)
Quarter: 2014Q4

REPORT INFORMATION
  Report Type: Spontaneous
  Country: US (occurrence: US)
  Receive Date: 20141015
  Receipt Date: 20141015
  Transmission Date: 20150528
  Serious: No
  Sender: FDA-Public Use
  Company Number: US-TARO-2013P1020180

PATIENT
  Age: 2 Year
  Sex: Female

DRUGS (1)
  1. HYDROCORTISONE VALERATE OINTMENT 0.2% [Suspect]
     Active Substance: HYDROCORTISONE VALERATE
     Indication: ECZEMA
     Route: 061
     Dates: start: 201310

REACTIONS (1)
  - Application site pain [Recovered/Resolved]

NARRATIVE: CASE EVENT DATE: 201310
